FAERS Safety Report 9893822 (Version 2)
Quarter: 2014Q1

REPORT INFORMATION
  Report Type: Report from Study
  Country: HN (occurrence: HN)
  Receive Date: 20140213
  Receipt Date: 20140219
  Transmission Date: 20141002
  Serious: Yes (Death, Hospitalization)
  Sender: FDA-Public Use
  Company Number: PHHY2014HN017263

PATIENT
  Age: 51 Year
  Sex: Male

DRUGS (2)
  1. GLIVEC [Suspect]
     Indication: CHRONIC MYELOID LEUKAEMIA
     Dosage: 400 MG, UNK
     Dates: start: 20121027, end: 20131224
  2. CLOZAPINE [Concomitant]
     Dosage: 25 MG, UNK

REACTIONS (2)
  - Death [Fatal]
  - Febrile neutropenia [Unknown]
